FAERS Safety Report 9476923 (Version 2)
Quarter: 2013Q3

REPORT INFORMATION
  Report Type: Spontaneous
  Country: NL (occurrence: NL)
  Receive Date: 20130826
  Receipt Date: 20130826
  Transmission Date: 20140515
  Serious: Yes (Other)
  Sender: FDA-Public Use
  Company Number: NL-009507513-1308NLD004658

PATIENT
  Age: 25 Year
  Sex: Female
  Weight: 60 kg

DRUGS (1)
  1. ESMERON [Suspect]
     Dosage: UNK
     Dates: start: 20130716, end: 20130716

REACTIONS (12)
  - Monoplegia [Unknown]
  - Drug hypersensitivity [Not Recovered/Not Resolved]
  - Accidental exposure to product [Unknown]
  - Burning sensation [Unknown]
  - Asthenia [Unknown]
  - Hypoaesthesia [Unknown]
  - Vasodilatation [Unknown]
  - Musculoskeletal stiffness [Unknown]
  - Pain in extremity [Unknown]
  - Musculoskeletal pain [Unknown]
  - Mental disorder [Unknown]
  - Condition aggravated [Unknown]
